FAERS Safety Report 12746606 (Version 1)
Quarter: 2016Q3

REPORT INFORMATION
  Report Type: Spontaneous
  Country: US (occurrence: US)
  Receive Date: 20160915
  Receipt Date: 20160915
  Transmission Date: 20161109
  Serious: Yes (Life-Threatening, Hospitalization, Disabling, Other)
  Sender: FDA-Public Use
  Company Number: None

PATIENT
  Age: 31 Year
  Sex: Female
  Weight: 51.75 kg

DRUGS (7)
  1. ARMOUR THYROID [Concomitant]
     Active Substance: THYROID, PORCINE
  2. CALCIUM + D3 [Concomitant]
     Active Substance: CALCIUM\CHOLECALCIFEROL
  3. TRANYCYPROMINE [Suspect]
     Active Substance: TRANYLCYPROMINE
     Indication: ANXIETY
     Dosage: 2 TABLETS TWICE A DAY ORAL
     Route: 048
     Dates: start: 20160105, end: 20160905
  4. GABAPENTIN. [Suspect]
     Active Substance: GABAPENTIN
  5. CLARITIN [Concomitant]
     Active Substance: LORATADINE
  6. ISOTRETINOIN [Suspect]
     Active Substance: ISOTRETINOIN
     Indication: ACNE
     Route: 048
     Dates: start: 20150930, end: 20160611
  7. FISH OIL [Concomitant]
     Active Substance: FISH OIL

REACTIONS (10)
  - Paralysis [None]
  - Swelling [None]
  - Mania [None]
  - Serotonin syndrome [None]
  - Hypertensive crisis [None]
  - White blood cell count abnormal [None]
  - Drug hypersensitivity [None]
  - Depression [None]
  - Laboratory test abnormal [None]
  - Photosensitivity reaction [None]

NARRATIVE: CASE EVENT DATE: 20160530
